FAERS Safety Report 17571940 (Version 1)
Quarter: 2020Q1

REPORT INFORMATION
  Report Type: Spontaneous
  Country: DE (occurrence: DE)
  Receive Date: 20200323
  Receipt Date: 20200323
  Transmission Date: 20200409
  Serious: Yes (Hospitalization)
  Sender: FDA-Public Use
  Company Number: DE-JNJFOC-20200321013

PATIENT
  Age: 13 Year
  Sex: Female
  Weight: 44 kg

DRUGS (4)
  1. MEDIKINET                          /00083801/ [Suspect]
     Active Substance: METHYLPHENIDATE
     Indication: ATTENTION DEFICIT/HYPERACTIVITY DISORDER
     Route: 048
  2. METHYLPHENIDATE. [Suspect]
     Active Substance: METHYLPHENIDATE
     Indication: ATTENTION DEFICIT/HYPERACTIVITY DISORDER
     Dosage: DAILY DOSE: 36 MG MILLGRAM(S) EVERY DAYS
     Route: 048
  3. AMFETAMIN [Suspect]
     Active Substance: AMPHETAMINE
     Indication: PRODUCT USED FOR UNKNOWN INDICATION
     Route: 048
  4. RISPERDAL [Suspect]
     Active Substance: RISPERIDONE
     Indication: ATTENTION DEFICIT/HYPERACTIVITY DISORDER
     Dosage: DAILY DOSE: 10 MG MILLGRAM(S) EVERY DAYS
     Route: 048

REACTIONS (7)
  - Mydriasis [Recovered/Resolved]
  - Cardiovascular disorder [Recovered/Resolved]
  - Dizziness [Recovered/Resolved]
  - Product use in unapproved indication [Unknown]
  - Tachypnoea [Recovered/Resolved]
  - Hallucination [Recovered/Resolved]
  - Off label use [Unknown]

NARRATIVE: CASE EVENT DATE: 20181029
